FAERS Safety Report 11516161 (Version 3)
Quarter: 2015Q3

REPORT INFORMATION
  Report Type: Spontaneous
  Country: RO (occurrence: RO)
  Receive Date: 20150917
  Receipt Date: 20150929
  Transmission Date: 20151125
  Serious: Yes (Death, Other)
  Sender: FDA-Public Use
  Company Number: RO-ASTRAZENECA-2015SE88086

PATIENT
  Age: 48 Year
  Sex: Male
  Weight: 90 kg

DRUGS (8)
  1. ACID ACETILSALICILIC  (AAS) [Concomitant]
  2. ANTIDIABETICS [Concomitant]
     Route: 048
  3. ATORVASTATIN [Concomitant]
     Active Substance: ATORVASTATIN
     Dates: start: 20150819
  4. BRILIQUE [Suspect]
     Active Substance: TICAGRELOR
     Indication: ACUTE MYOCARDIAL INFARCTION
     Route: 048
  5. METOPROLOL [Suspect]
     Active Substance: METOPROLOL
     Route: 048
  6. ACID ACETILSALICILIC  (AAS) [Concomitant]
     Dates: start: 20150819
  7. ENOXAPARIN [Concomitant]
     Active Substance: ENOXAPARIN
     Route: 058
     Dates: start: 20150819
  8. PERINDOPRIL [Concomitant]
     Active Substance: PERINDOPRIL
     Dates: start: 20150819

REACTIONS (3)
  - Ventricular fibrillation [Fatal]
  - Cardio-respiratory arrest [Fatal]
  - Atrioventricular block complete [Unknown]
